FAERS Safety Report 20964507 (Version 1)
Quarter: 2022Q2

REPORT INFORMATION
  Report Type: Spontaneous
  Country: US (occurrence: US)
  Receive Date: 20220615
  Receipt Date: 20220615
  Transmission Date: 20220720
  Serious: Yes (Other)
  Sender: FDA-Public Use
  Company Number: US-009507513-2206USA002683

PATIENT
  Sex: Male

DRUGS (1)
  1. KEYTRUDA [Suspect]
     Active Substance: PEMBROLIZUMAB
     Indication: Colorectal cancer
     Dosage: UNK
     Dates: start: 202204

REACTIONS (1)
  - Carcinoembryonic antigen increased [Unknown]

NARRATIVE: CASE EVENT DATE: 20220101
